FAERS Safety Report 9866754 (Version 2)
Quarter: 2014Q1

REPORT INFORMATION
  Report Type: Report from Study
  Country: CA (occurrence: CA)
  Receive Date: 20140204
  Receipt Date: 20140204
  Transmission Date: 20141002
  Serious: Yes (Hospitalization, Other)
  Sender: FDA-Public Use
  Company Number: CA-BRISTOL-MYERS SQUIBB COMPANY-16748527

PATIENT
  Age: 75 Year
  Sex: Female

DRUGS (9)
  1. ORENCIA [Suspect]
     Indication: RHEUMATOID ARTHRITIS
     Dosage: LAST DOSE WAS GIVEN ON 05-JUN-2012
     Route: 042
     Dates: start: 20120206
  2. ASPIRIN [Concomitant]
  3. MICARDIS PLUS [Concomitant]
  4. AMLODIPINE [Concomitant]
  5. METHOTREXATE [Concomitant]
  6. FOLIC ACID [Concomitant]
  7. LEUCOVORIN [Concomitant]
  8. TECTA [Concomitant]
  9. PREDNISONE [Concomitant]

REACTIONS (7)
  - Atrial fibrillation [Recovered/Resolved]
  - Basal cell carcinoma [Not Recovered/Not Resolved]
  - Arthropathy [Unknown]
  - Blister [Unknown]
  - Pain in extremity [Unknown]
  - Paraesthesia [Unknown]
  - Scar [Unknown]
